FAERS Safety Report 22151966 (Version 2)
Quarter: 2024Q1

REPORT INFORMATION
  Report Type: Report from Study
  Country: JP (occurrence: JP)
  Receive Date: 20230329
  Receipt Date: 20240214
  Transmission Date: 20240409
  Serious: No
  Sender: FDA-Public Use
  Company Number: JP-BIOCRYST PHARMACEUTICALS, INC.-2023BCR00298

PATIENT
  Age: 38 Year
  Sex: Female
  Weight: 50.6 kg

DRUGS (7)
  1. ORLADEYO [Suspect]
     Active Substance: BEROTRALSTAT HYDROCHLORIDE
     Indication: Hereditary angioedema
     Dosage: 150 MG, QD
     Route: 048
     Dates: start: 20220728
  2. BERINERT P [Concomitant]
     Active Substance: HUMAN C1-ESTERASE INHIBITOR
     Indication: Hereditary angioedema
     Dosage: UNK
     Route: 042
     Dates: start: 20221221, end: 20221221
  3. BERINERT P [Concomitant]
     Active Substance: HUMAN C1-ESTERASE INHIBITOR
     Dosage: UNK
     Route: 042
     Dates: start: 20230219, end: 20230219
  4. BERINERT P [Concomitant]
     Active Substance: HUMAN C1-ESTERASE INHIBITOR
     Dosage: UNK
     Route: 042
     Dates: start: 20230515, end: 20230515
  5. BERINERT P [Concomitant]
     Active Substance: HUMAN C1-ESTERASE INHIBITOR
     Dosage: UNK
     Route: 042
     Dates: start: 20230702, end: 20230702
  6. GASCON [DIMETICONE] [Concomitant]
     Indication: Abdominal distension
     Dosage: 40 MG, QD
     Route: 048
     Dates: start: 20230302
  7. ACETAMINOPHEN [Concomitant]
     Active Substance: ACETAMINOPHEN
     Indication: Abdominal pain
     Dosage: 500 MG, QD
     Route: 048
     Dates: start: 20221221

REACTIONS (2)
  - Gastrointestinal oedema [Unknown]
  - Abdominal pain [Unknown]
